FAERS Safety Report 5788242-4 (Version None)
Quarter: 2008Q2

REPORT INFORMATION
  Report Type: 
  Country: None (occurrence: None)
  Receive Date: 20080625
  Receipt Date: 20080613
  Transmission Date: 20081010
  Serious: Yes (Other)
  Sender: FDA-Public Use
  Company Number: US-PFIZER INC-2008050051

PATIENT
  Sex: Female
  Weight: 40.909 kg

DRUGS (2)
  1. DILANTIN [Suspect]
     Indication: EPILEPSY
     Route: 048
  2. ORAL CONTRACEPTIVE NOS [Concomitant]

REACTIONS (5)
  - ABDOMINAL PAIN UPPER [None]
  - HAEMATEMESIS [None]
  - NECK MASS [None]
  - PYREXIA [None]
  - VISION BLURRED [None]
